FAERS Safety Report 25918667 (Version 1)
Quarter: 2025Q4

REPORT INFORMATION
  Report Type: Spontaneous
  Country: US (occurrence: None)
  Receive Date: 20251010
  Receipt Date: 20251010
  Transmission Date: 20260117
  Serious: Yes (Hospitalization)
  Sender: FDA-CTU
  Company Number: None

PATIENT
  Sex: Female

DRUGS (11)
  1. SIMLANDI [Suspect]
     Active Substance: ADALIMUMAB-RYVK
     Indication: Rheumatoid arthritis
     Dosage: OTHER FREQUENCY : EVERYOTHERWEEK;?
     Route: 058
     Dates: start: 20250108
  2. AMITRIPTYLIN TAB 75MG [Concomitant]
  3. FOLIC ACID TAB 1MG [Concomitant]
  4. LIPITOR TAB 20MG [Concomitant]
  5. LISINOPRIL [Concomitant]
     Active Substance: LISINOPRIL
  6. METFORMIN TAB 1000MG [Concomitant]
  7. METFORMIN [Concomitant]
     Active Substance: METFORMIN HYDROCHLORIDE
  8. METHOTREXATE [Concomitant]
     Active Substance: METHOTREXATE
  9. METHYLPRACE INJ 40MG/ML [Concomitant]
  10. PREDNISONE TAB5MG [Concomitant]
  11. RASUVO [Concomitant]
     Active Substance: METHOTREXATE SODIUM

REACTIONS (1)
  - Cardiac failure [None]
